FAERS Safety Report 4690300-2 (Version None)
Quarter: 2005Q2

REPORT INFORMATION
  Report Type: 
  Country: None (occurrence: None)
  Receive Date: 20050615
  Receipt Date: 20050603
  Transmission Date: 20051028
  Serious: Yes (Disabling)
  Sender: FDA-Public Use
  Company Number: NL-GLAXOSMITHKLINE-B0383934A

PATIENT
  Sex: Female

DRUGS (1)
  1. MUPIROCIN [Suspect]
     Route: 065

REACTIONS (3)
  - BALANCE DISORDER [None]
  - DIFFICULTY IN WALKING [None]
  - FEELING ABNORMAL [None]
